FAERS Safety Report 12435448 (Version 1)
Quarter: 2016Q2

REPORT INFORMATION
  Report Type: Spontaneous
  Country: US (occurrence: US)
  Receive Date: 20160603
  Receipt Date: 20160603
  Transmission Date: 20160815
  Serious: No
  Sender: FDA-Public Use
  Company Number: US-ROCHE-1580280

PATIENT
  Sex: Female

DRUGS (2)
  1. CAPECITABINE. [Suspect]
     Active Substance: CAPECITABINE
     Dosage: 7 DAYS ON 7 DAYS OFF
     Route: 065
     Dates: start: 20150430
  2. CAPECITABINE. [Suspect]
     Active Substance: CAPECITABINE
     Indication: RECTAL CANCER
     Dosage: MONDAY THROUGH FRIDAY FOR 30 DAYS
     Route: 065
     Dates: start: 2010

REACTIONS (1)
  - Nausea [Recovered/Resolved]
